FAERS Safety Report 5565631-4 (Version None)
Quarter: 2007Q4

REPORT INFORMATION
  Report Type: 
  Country: None (occurrence: None)
  Receive Date: 20071218
  Receipt Date: 20071213
  Transmission Date: 20080405
  Serious: Yes (Death)
  Sender: FDA-Public Use
  Company Number: CA-BOEHRINGER INGELHEIM PHARMACEUTICALS, INC.-2007-CN-00712CN

PATIENT
  Sex: Male

DRUGS (1)
  1. CATAPRES [Suspect]
     Dates: start: 20060101

REACTIONS (1)
  - MYOCARDIAL INFARCTION [None]
